FAERS Safety Report 5083373-9 (Version None)
Quarter: 2006Q3

REPORT INFORMATION
  Report Type: 
  Country: None (occurrence: None)
  Receive Date: 20060816
  Receipt Date: 20060803
  Transmission Date: 20061208
  Serious: Yes (Disabling, Other)
  Sender: FDA-Public Use
  Company Number: 2006PV018820

PATIENT
  Sex: Male

DRUGS (5)
  1. BYETTA INJECTION (.25 MG/DL) [Suspect]
     Indication: DIABETES MELLITUS NON-INSULIN-DEPENDENT
     Dosage: SEE IMAGE
     Route: 058
     Dates: start: 20051101, end: 20060101
  2. BYETTA INJECTION (.25 MG/DL) [Suspect]
     Indication: DIABETES MELLITUS NON-INSULIN-DEPENDENT
     Dosage: SEE IMAGE
     Route: 058
     Dates: start: 20060101
  3. ACTOPLUS MET [Concomitant]
  4. METFORMIN [Concomitant]
  5. AMARYL [Concomitant]

REACTIONS (1)
  - BLINDNESS [None]
